FAERS Safety Report 20868361 (Version 3)
Quarter: 2023Q4

REPORT INFORMATION
  Report Type: Report from Study
  Country: ZA (occurrence: ZA)
  Receive Date: 20220524
  Receipt Date: 20231108
  Transmission Date: 20240110
  Serious: Yes (Other)
  Sender: FDA-Public Use
  Company Number: ZA-NOVARTISPH-NVSC2022ZA117156

PATIENT
  Age: 68 Year
  Sex: Male

DRUGS (1)
  1. FINGOLIMOD HYDROCHLORIDE [Suspect]
     Active Substance: FINGOLIMOD HYDROCHLORIDE
     Indication: Relapsing-remitting multiple sclerosis
     Dosage: 0.5 MG, QD
     Route: 048
     Dates: start: 20190204

REACTIONS (5)
  - Demyelination [Unknown]
  - Gait disturbance [Unknown]
  - Balance disorder [Unknown]
  - Expanded disability status scale score increased [Unknown]
  - Urinary tract disorder [Unknown]
